FAERS Safety Report 13147835 (Version 2)
Quarter: 2017Q4

REPORT INFORMATION
  Report Type: Spontaneous
  Country: IT (occurrence: IT)
  Receive Date: 20170125
  Receipt Date: 20171117
  Transmission Date: 20180320
  Serious: Yes (Other)
  Sender: FDA-Public Use
  Company Number: IT-SUN PHARMACEUTICAL INDUSTRIES LTD-2017R1-132129

PATIENT
  Age: 73 Year
  Sex: Male

DRUGS (3)
  1. METHOTREXATE. [Suspect]
     Active Substance: METHOTREXATE
     Indication: PYODERMA GANGRENOSUM
     Dosage: 7.5 MG, 1/WEEK
     Route: 065
  2. DOXYCYCLINE. [Suspect]
     Active Substance: DOXYCYCLINE
     Indication: PYODERMA GANGRENOSUM
     Dosage: 100 MG, BID
     Route: 065
  3. METHYLPREDNISOLONE. [Suspect]
     Active Substance: METHYLPREDNISOLONE
     Indication: PYODERMA GANGRENOSUM
     Dosage: 60 MG, DAILY
     Route: 065

REACTIONS (2)
  - Condition aggravated [Recovered/Resolved]
  - Hepatotoxicity [Unknown]
